FAERS Safety Report 8170057-3 (Version None)
Quarter: 2012Q1

REPORT INFORMATION
  Report Type: 
  Country: None (occurrence: None)
  Receive Date: 20120104
  Receipt Date: 20111122
  Transmission Date: 20120608
  Serious: No
  Sender: FDA-Public Use
  Company Number: 2011HGS-002856

PATIENT
  Age: 54 Year
  Sex: Female
  Weight: 74.8435 kg

DRUGS (5)
  1. TOPAMAX (TOPIRAMATE) (TOPIRAMATE) [Concomitant]
  2. LISINOPRIL [Concomitant]
  3. BENLYSTA [Suspect]
     Indication: SYSTEMIC LUPUS ERYTHEMATOSUS
     Dosage: 1 IN 28 D, INTRAVENOUS DRIP
     Route: 041
     Dates: start: 20111011, end: 20111011
  4. PLAQUENIL (HYDROXYCHLOROQUINE SULFATE) (HYDROXYCHLOROQUINE SULFATE) [Concomitant]
  5. SEVELLA (MILNACIPRAN) (MILNACIPRAN) [Concomitant]

REACTIONS (2)
  - CHILLS [None]
  - BLOOD PRESSURE DECREASED [None]
